FAERS Safety Report 23115141 (Version 3)
Quarter: 2023Q4

REPORT INFORMATION
  Report Type: Spontaneous
  Country: US (occurrence: US)
  Receive Date: 20231027
  Receipt Date: 20231219
  Transmission Date: 20240109
  Serious: Yes (Other)
  Sender: FDA-Public Use
  Company Number: US-BAYER-2023A150817

PATIENT
  Age: 50 Year
  Sex: Female
  Weight: 52.154 kg

DRUGS (5)
  1. MIRENA [Suspect]
     Active Substance: LEVONORGESTREL
     Dosage: 20?G/DAY
     Route: 015
     Dates: start: 20210614, end: 20231018
  2. ATORVASTATIN [Concomitant]
     Active Substance: ATORVASTATIN
     Dosage: 10 MG
     Route: 048
     Dates: start: 20230910
  3. CIPROFLOXACIN [Concomitant]
     Active Substance: CIPROFLOXACIN
     Dosage: 500 MG
     Route: 048
     Dates: start: 20230910
  4. KETOROLAC [Concomitant]
     Active Substance: KETOROLAC TROMETHAMINE
     Dosage: 10 MG
     Route: 048
     Dates: start: 20231018
  5. METRONIDAZOLE [Concomitant]
     Active Substance: METRONIDAZOLE
     Dosage: 500 MG
     Route: 048
     Dates: start: 20231018

REACTIONS (9)
  - Embedded device [None]
  - Dyspareunia [None]
  - Complication of device removal [None]
  - Stress [None]
  - Procedural pain [None]
  - Crying [None]
  - Device physical property issue [None]
  - Body temperature increased [None]
  - Procedural haemorrhage [None]

NARRATIVE: CASE EVENT DATE: 20231018
